FAERS Safety Report 20879022 (Version 1)
Quarter: 2022Q2

REPORT INFORMATION
  Report Type: Spontaneous
  Country: US (occurrence: None)
  Receive Date: 20220526
  Receipt Date: 20220526
  Transmission Date: 20220721
  Serious: Yes (Other)
  Sender: FDA-Public Use
  Company Number: None

PATIENT
  Age: 44 Year
  Sex: Male
  Weight: 121.5 kg

DRUGS (2)
  1. METHYLPHENIDATE [Suspect]
     Active Substance: METHYLPHENIDATE
     Indication: Attention deficit hyperactivity disorder
     Dosage: OTHER QUANTITY : 1.5 TABLET(S);?FREQUENCY : 3 TIMES A DAY;?
     Route: 048
     Dates: start: 20220519
  2. Fluoxetine 10mg in the morning [Concomitant]

REACTIONS (13)
  - Product substitution issue [None]
  - Product complaint [None]
  - Manufacturing materials issue [None]
  - Adulterated product [None]
  - Somnolence [None]
  - Apathy [None]
  - Fatigue [None]
  - Dizziness [None]
  - Depressed level of consciousness [None]
  - Gait disturbance [None]
  - Balance disorder [None]
  - Fall [None]
  - Drug ineffective [None]

NARRATIVE: CASE EVENT DATE: 20220518
